FAERS Safety Report 11203795 (Version 1)
Quarter: 2015Q2

REPORT INFORMATION
  Report Type: Spontaneous
  Country: CL (occurrence: CL)
  Receive Date: 20150619
  Receipt Date: 20150619
  Transmission Date: 20150821
  Serious: Yes (Other)
  Sender: FDA-Public Use
  Company Number: ALCN2015CL003891

PATIENT
  Sex: Female

DRUGS (1)
  1. MIOSTAT [Suspect]
     Active Substance: CARBACHOL
     Indication: INTRAOCULAR LENS IMPLANT
     Dosage: 1 DF, UNK
     Route: 065

REACTIONS (1)
  - Corneal endothelial cell loss [Unknown]

NARRATIVE: CASE EVENT DATE: 20150608
